FAERS Safety Report 6552164-1 (Version None)
Quarter: 2010Q1

REPORT INFORMATION
  Report Type: 
  Country: None (occurrence: None)
  Receive Date: 20100126
  Receipt Date: 20100114
  Transmission Date: 20100710
  Serious: Yes (Other)
  Sender: FDA-Public Use
  Company Number: US-PFIZER INC-2010000716

PATIENT
  Sex: Female
  Weight: 56.7 kg

DRUGS (2)
  1. ZITHROMAX [Suspect]
     Indication: HEADACHE
     Dosage: UNK
  2. SYNTHROID [Concomitant]
     Dosage: UNK

REACTIONS (5)
  - ANAEMIA [None]
  - BLOOD PARATHYROID HORMONE INCREASED [None]
  - GLOMERULONEPHRITIS [None]
  - PROTEINURIA [None]
  - RENAL IMPAIRMENT [None]
